FAERS Safety Report 20514589 (Version 1)
Quarter: 2022Q1

REPORT INFORMATION
  Report Type: Spontaneous
  Country: US (occurrence: None)
  Receive Date: 20220224
  Receipt Date: 20220224
  Transmission Date: 20220423
  Serious: Yes (Hospitalization)
  Sender: FDA-Public Use
  Company Number: None

PATIENT
  Age: 56 Year
  Sex: Male
  Weight: 83 kg

DRUGS (1)
  1. ESCITALOPRAM OXALATE [Suspect]
     Active Substance: ESCITALOPRAM OXALATE
     Indication: Depression
     Dosage: 15 MG EVERY DAY PO?
     Route: 048
     Dates: start: 20210621

REACTIONS (4)
  - Overdose [None]
  - Suicidal ideation [None]
  - Alcohol use [None]
  - Drug abuse [None]

NARRATIVE: CASE EVENT DATE: 20220219
